FAERS Safety Report 19497245 (Version 1)
Quarter: 2021Q3

REPORT INFORMATION
  Report Type: Report from Study
  Country: US (occurrence: US)
  Receive Date: 20210706
  Receipt Date: 20210706
  Transmission Date: 20211014
  Serious: Yes (Death)
  Sender: FDA-Public Use
  Company Number: US-ACCORD-230291

PATIENT
  Age: 36 Year
  Sex: Female

DRUGS (1)
  1. CLOZAPINE ACCORD [Suspect]
     Active Substance: CLOZAPINE
     Indication: PRODUCT USED FOR UNKNOWN INDICATION
     Route: 048

REACTIONS (3)
  - COVID-19 [Fatal]
  - Illness [Unknown]
  - Neutrophilia [Not Recovered/Not Resolved]

NARRATIVE: CASE EVENT DATE: 20210323
